FAERS Safety Report 8787927 (Version 1)
Quarter: 2012Q4

REPORT INFORMATION
  Report Type: 
  Country: US (occurrence: US)
  Receive Date: 20120914
  Receipt Date: 20120914
  Transmission Date: 20130627
  Serious: Yes (Other)
  Sender: FDA-Public Use
  Company Number: US-SPECTRUM PHARMACEUTICALS, INC.-12-F-US-00129

PATIENT

DRUGS (12)
  1. FLUOROURACIL [Suspect]
     Indication: PRODUCT USED FOR UNKNOWN INDICATION
     Dosage: UNK
     Route: 065
  2. FLUOROURACIL [Suspect]
     Dosage: UNK
     Route: 065
  3. FLUOROURACIL [Suspect]
     Dosage: UNK
     Route: 065
  4. CETUXIMAB [Suspect]
     Indication: PRODUCT USED FOR UNKNOWN INDICATION
     Dosage: UNK
     Route: 065
  5. LEUCOVORIN [Suspect]
     Indication: PRODUCT USED FOR UNKNOWN INDICATION
     Dosage: UNK
     Route: 065
  6. LEUCOVORIN [Suspect]
     Dosage: UNK
     Route: 065
  7. LEUCOVORIN [Suspect]
     Dosage: UNK
     Route: 065
  8. IRINOTECAN [Suspect]
     Indication: PRODUCT USED FOR UNKNOWN INDICATION
     Dosage: UNK
     Route: 065
  9. IRINOTECAN [Suspect]
     Dosage: UNK
     Route: 065
  10. OXALIPLATIN [Suspect]
     Indication: PRODUCT USED FOR UNKNOWN INDICATION
     Dosage: UNK
     Route: 065
  11. AVASTIN                            /01555201/ [Suspect]
     Indication: PRODUCT USED FOR UNKNOWN INDICATION
     Dosage: UNK
     Route: 065
  12. AVASTIN                            /01555201/ [Suspect]
     Dosage: UNK
     Route: 065

REACTIONS (1)
  - Skin toxicity [Unknown]
